FAERS Safety Report 9613136 (Version 2)
Quarter: 2013Q4

REPORT INFORMATION
  Report Type: Report from Study
  Country: DE (occurrence: DE)
  Receive Date: 20131010
  Receipt Date: 20131104
  Transmission Date: 20140711
  Serious: Yes (Other)
  Sender: FDA-Public Use
  Company Number: DE-PFIZER INC-2013287100

PATIENT
  Sex: Female
  Weight: 77 kg

DRUGS (3)
  1. EXEMESTANE [Suspect]
     Indication: BREAST CANCER METASTATIC
     Dosage: 25 MG, 1X/DAY
     Route: 048
     Dates: start: 20130103
  2. AFINITOR [Suspect]
     Indication: BREAST CANCER METASTATIC
     Dosage: 5 MG, 1X/DAY
     Route: 048
     Dates: start: 20130103, end: 20130424
  3. AFINITOR [Suspect]
     Dosage: 10 MG, 1X/DAY
     Route: 048
     Dates: start: 20130425

REACTIONS (3)
  - Tumour marker increased [Unknown]
  - Skin toxicity [Recovered/Resolved]
  - Pruritus [Recovered/Resolved]
